FAERS Safety Report 9887178 (Version 2)
Quarter: 2014Q3

REPORT INFORMATION
  Report Type: Spontaneous
  Country: FR (occurrence: FR)
  Receive Date: 20140211
  Receipt Date: 20140923
  Transmission Date: 20150326
  Serious: Yes (Hospitalization)
  Sender: FDA-Public Use
  Company Number: FR-AMGEN-FRASP2014008357

PATIENT
  Age: 85 Year
  Sex: Female

DRUGS (19)
  1. VELCADE [Suspect]
     Active Substance: BORTEZOMIB
     Indication: PLASMA CELL MYELOMA
     Dosage: 1.8 MG, QWK, AT DL, D8, D15, D22 S
     Route: 042
     Dates: start: 20131128
  2. IMOVANE [Concomitant]
     Active Substance: ZOPICLONE
     Dosage: 7.5 MG, QD, LONG TERM, 1 DF
     Route: 048
  3. LYRICA [Concomitant]
     Active Substance: PREGABALIN
     Dosage: 25 MG, QD, 1 DF
     Route: 048
  4. CALCIDOSE                          /00944201/ [Concomitant]
     Dosage: 500 MG TWICE IN A DAY, BID, LONG TERM
     Route: 048
  5. ARANESP [Suspect]
     Active Substance: DARBEPOETIN ALFA
     Indication: ANAEMIA
     Dosage: 150 MUG, QWK
     Route: 058
     Dates: end: 20140103
  6. PARACETAMOL [Concomitant]
     Active Substance: ACETAMINOPHEN
     Dosage: 1 G, 2 CP, QD, LONG TERM
     Route: 048
  7. ACUPAN [Concomitant]
     Active Substance: NEFOPAM HYDROCHLORIDE
     Dosage: 4 VIALS, QD, LONG TERM
     Route: 030
  8. SMECTA                             /00837601/ [Concomitant]
     Dosage: 3 SACHETS, QD, IF NEEDED
     Route: 048
  9. INEXIUM                            /01479302/ [Concomitant]
     Active Substance: ESOMEPRAZOLE MAGNESIUM
     Dosage: 40 MG, 1 CP, QD, LONG TERM, 1 DF
     Route: 048
  10. LANTUS [Concomitant]
     Active Substance: INSULIN GLARGINE
     Dosage: 30 IU, IN THE MORNING, LONG TERM
     Route: 058
  11. IMODIUM [Concomitant]
     Active Substance: LOPERAMIDE HYDROCHLORIDE
     Dosage: 2 MG, QD, LONG TERM, 1 DF
     Route: 048
  12. TRIATEC                            /00116401/ [Concomitant]
     Active Substance: HYDROCHLOROTHIAZIDE
     Dosage: 2.5 MG, QD, LONG TERM, 1 DF
     Route: 048
  13. CORTANCYL [Suspect]
     Active Substance: PREDNISONE
     Indication: PLASMA CELL MYELOMA
     Dosage: 20 MG, QD, 5 CP, 1 DF
     Route: 048
     Dates: start: 20131128
  14. PLAVIX [Suspect]
     Active Substance: CLOPIDOGREL BISULFATE
     Indication: PRODUCT USED FOR UNKNOWN INDICATION
     Dosage: 75 MG, 1 DF, QD. 1 CP, LONG TERM
     Route: 048
     Dates: start: 20140103, end: 20140103
  15. EPOGEN [Concomitant]
     Active Substance: ERYTHROPOIETIN
     Route: 065
  16. DEROXAT [Concomitant]
     Active Substance: PAROXETINE HYDROCHLORIDE
     Dosage: 20 MG, 1 DF, 1 CP, QD, LONG TERM
     Route: 048
  17. LESCOL [Concomitant]
     Active Substance: FLUVASTATIN SODIUM
     Dosage: 80 MG, LP, 1 CP, QD, 1 DF
     Route: 048
  18. ALKERAN [Suspect]
     Active Substance: MELPHALAN
     Indication: PLASMA CELL MYELOMA
     Dosage: 6 CP, QD FROM D1 TO D4
     Route: 048
     Dates: start: 20131128
  19. AMLOR [Concomitant]
     Active Substance: AMLODIPINE BESYLATE
     Dosage: 10 MG, QD, LONG TERM, 1 DF
     Route: 048

REACTIONS (1)
  - Deep vein thrombosis [Recovering/Resolving]

NARRATIVE: CASE EVENT DATE: 20140102
